FAERS Safety Report 7920168-X (Version None)
Quarter: 2011Q4

REPORT INFORMATION
  Report Type: 
  Country: None (occurrence: None)
  Receive Date: 20111117
  Receipt Date: 20111109
  Transmission Date: 20120403
  Serious: Yes (Other)
  Sender: FDA-Public Use
  Company Number: JP-JNJFOC-20111002609

PATIENT
  Age: 26 Year
  Sex: Female
  Weight: 55 kg

DRUGS (26)
  1. FENTANYL-100 [Suspect]
     Route: 062
     Dates: start: 20110607, end: 20110627
  2. FENTANYL-100 [Suspect]
     Route: 062
     Dates: start: 20110701, end: 20110805
  3. CODEIN PHOSPHATE [Suspect]
     Dosage: 1 AS NECESSARY
     Route: 048
     Dates: start: 20110530
  4. BETAHISTINE MESILATE [Suspect]
     Indication: PRODUCT USED FOR UNKNOWN INDICATION
     Dosage: 1 AS NECESSARY
     Route: 048
     Dates: start: 20110523, end: 20110605
  5. PROCHLORPERAZINE MALEATE [Suspect]
     Indication: PRODUCT USED FOR UNKNOWN INDICATION
     Route: 048
     Dates: start: 20110607, end: 20110616
  6. EPERISONE HYDROCHLORIDE [Suspect]
     Indication: PAIN
     Route: 048
     Dates: start: 20110704, end: 20110714
  7. CODEIN PHOSPHATE [Suspect]
     Indication: PAIN
     Dosage: 1 AS NECESSARY
     Route: 048
     Dates: start: 20110613
  8. METOCLOPRAMIDE [Suspect]
     Indication: PRODUCT USED FOR UNKNOWN INDICATION
     Route: 048
     Dates: start: 20110530, end: 20110606
  9. FENTANYL-100 [Suspect]
     Route: 062
     Dates: start: 20110628, end: 20110630
  10. CODEIN PHOSPHATE [Suspect]
     Dosage: 1 AS NECESSARY
     Route: 048
     Dates: start: 20110606
  11. ALPRAZOLAM [Suspect]
     Indication: PRODUCT USED FOR UNKNOWN INDICATION
     Dosage: 1 AS NECESSARY
     Route: 048
     Dates: start: 20110530, end: 20110805
  12. DIFENIDOL HYDROCHLORIDE [Suspect]
     Indication: PRODUCT USED FOR UNKNOWN INDICATION
     Route: 048
     Dates: start: 20110607, end: 20110703
  13. TRAMADOL HCL [Suspect]
     Indication: PAIN
     Dosage: 1 AS NEEDED
     Route: 048
     Dates: start: 20110627
  14. MORPHINE HCL ELIXIR [Suspect]
     Indication: PAIN
     Dosage: 1 AS NECESSARY
     Route: 048
     Dates: start: 20110624
  15. TRIAZOLAM [Suspect]
     Indication: PRODUCT USED FOR UNKNOWN INDICATION
     Route: 048
     Dates: start: 20110530, end: 20110805
  16. PREGABALIN [Suspect]
     Indication: PAIN
     Route: 048
     Dates: start: 20110704, end: 20110805
  17. LOXOPROFEN SODIUM [Suspect]
     Indication: PRODUCT USED FOR UNKNOWN INDICATION
     Dosage: 1 AS NECESSARY
     Route: 048
     Dates: start: 20110523, end: 20110605
  18. ZOLPIDEM TARTRATE [Suspect]
     Indication: PRODUCT USED FOR UNKNOWN INDICATION
     Dosage: 1 AS NECESSARY
     Route: 048
     Dates: start: 20110627, end: 20110805
  19. MAGNESIUM OXIDE [Suspect]
     Indication: PRODUCT USED FOR UNKNOWN INDICATION
     Dosage: 1 AS NEEDED
     Route: 048
     Dates: start: 20110511, end: 20110530
  20. SERTRALINE HYDROCHLORIDE [Suspect]
     Indication: PRODUCT USED FOR UNKNOWN INDICATION
     Route: 048
     Dates: start: 20110704, end: 20110805
  21. FENTANYL-100 [Suspect]
     Indication: PAIN
     Route: 062
     Dates: start: 20110530, end: 20110606
  22. MORPHINE HCL ELIXIR [Suspect]
     Dosage: 1 AS NECESSARY
     Route: 048
     Dates: start: 20110620
  23. SENNOSIDE [Suspect]
     Indication: PRODUCT USED FOR UNKNOWN INDICATION
     Route: 048
     Dates: start: 20110511, end: 20110530
  24. CLONIDINE HYDROCHLORIDE [Suspect]
     Route: 048
     Dates: start: 20110606, end: 20110617
  25. MORPHINE HCL ELIXIR [Suspect]
     Route: 048
     Dates: start: 20110627
  26. CLONIDINE HYDROCHLORIDE [Suspect]
     Indication: PAIN
     Route: 048
     Dates: start: 20110523, end: 20110605

REACTIONS (4)
  - SOMNOLENCE [None]
  - MATERNAL EXPOSURE DURING PREGNANCY [None]
  - ABORTION INDUCED [None]
  - VOMITING [None]
